FAERS Safety Report 5385992-9 (Version None)
Quarter: 2007Q3

REPORT INFORMATION
  Report Type: 
  Country: None (occurrence: None)
  Receive Date: 20070710
  Receipt Date: 20070226
  Transmission Date: 20080115
  Serious: Yes (Other)
  Sender: FDA-Public Use
  Company Number: 6034123

PATIENT
  Age: 46 Year
  Sex: Male

DRUGS (4)
  1. FLUOXETINE [Suspect]
     Indication: OBSESSIVE-COMPULSIVE DISORDER
     Dosage: 20 MG (20 MG, 1 IN 1 D) ORAL
     Route: 048
     Dates: start: 19990101, end: 19990101
  2. CLOMIPRAMINE HCL [Concomitant]
  3. HALOPERIDOL [Concomitant]
  4. RISPERIDONE [Concomitant]

REACTIONS (9)
  - APATHY [None]
  - ASTHENIA [None]
  - CONDITION AGGRAVATED [None]
  - DECREASED APPETITE [None]
  - DEPRESSION [None]
  - GAIT DISTURBANCE [None]
  - HUNTINGTON'S CHOREA [None]
  - SLEEP DISORDER [None]
  - TEARFULNESS [None]
